FAERS Safety Report 6260377-1 (Version None)
Quarter: 2009Q3

REPORT INFORMATION
  Report Type: 
  Country: None (occurrence: None)
  Receive Date: 20090708
  Receipt Date: 20090702
  Transmission Date: 20100115
  Serious: Yes (Hospitalization)
  Sender: FDA-Public Use
  Company Number: FR-WATSON-2009-05123

PATIENT
  Age: 35 Year
  Sex: Male

DRUGS (1)
  1. ZOLPIDEM TARTRATE [Suspect]
     Indication: DRUG ABUSE
     Dosage: UNK
     Route: 013

REACTIONS (4)
  - DRUG ADMINISTRATION ERROR [None]
  - EXTREMITY NECROSIS [None]
  - PERIPHERAL ISCHAEMIA [None]
  - WRONG TECHNIQUE IN DRUG USAGE PROCESS [None]
